FAERS Safety Report 18320764 (Version 1)
Quarter: 2020Q3

REPORT INFORMATION
  Report Type: Spontaneous
  Country: US (occurrence: US)
  Receive Date: 20200928
  Receipt Date: 20200928
  Transmission Date: 20201103
  Serious: Yes (Hospitalization, Other)
  Sender: FDA-Public Use
  Company Number: US-SPECGX-T202001447

PATIENT
  Age: 13 Year
  Sex: Female

DRUGS (4)
  1. METHADONE [Suspect]
     Active Substance: METHADONE HYDROCHLORIDE
     Indication: PAIN
     Dosage: 7.5 MILLIGRAM, BID
     Route: 048
  2. MORPHINE [Suspect]
     Active Substance: MORPHINE
     Indication: BREAKTHROUGH PAIN
     Dosage: 7.5 MILLIGRAM, Q4H PRN
     Route: 048
  3. CANNABIDIOL [Interacting]
     Active Substance: CANNABIDIOL
     Indication: PAIN
     Dosage: 5 MILLILITER, TID
     Route: 048
  4. CANNABIDIOL [Interacting]
     Active Substance: CANNABIDIOL
     Dosage: 5 MILLILITER (SIX TIMES DAILY)
     Route: 048

REACTIONS (5)
  - Fatigue [Recovering/Resolving]
  - Miosis [Recovering/Resolving]
  - Drug interaction [Unknown]
  - Drug level increased [Recovering/Resolving]
  - Somnolence [Unknown]
